FAERS Safety Report 5532255-4 (Version None)
Quarter: 2007Q4

REPORT INFORMATION
  Report Type: 
  Country: None (occurrence: None)
  Receive Date: 20071203
  Receipt Date: 20071126
  Transmission Date: 20080405
  Serious: Yes (Other)
  Sender: FDA-Public Use
  Company Number: JP-SANOFI-SYNTHELABO-A01200712536

PATIENT
  Sex: Male
  Weight: 57 kg

DRUGS (7)
  1. EL NO. 3 (MAINTENANCE MEDIUM) [Concomitant]
     Route: 042
     Dates: start: 20071023, end: 20071024
  2. VITAMEDIN [Concomitant]
     Route: 042
     Dates: start: 20071023, end: 20071023
  3. NASEA [Concomitant]
     Indication: PREMEDICATION
     Route: 042
     Dates: start: 20070514, end: 20071023
  4. DECADRON [Concomitant]
     Indication: PREMEDICATION
     Route: 042
     Dates: start: 20070514, end: 20071023
  5. ISOVORIN [Concomitant]
     Dosage: 140 MG/BODY=89.7 MG/M2
     Route: 041
     Dates: start: 20071023, end: 20071023
  6. FLUOROURACIL [Concomitant]
     Dosage: 430 MG/BODY=275.6 MG/M2 IN BOLUS THEN 730 MG/BODY=467.9 MG/M2 AS INFUSION
     Route: 041
     Dates: start: 20071010, end: 20071011
  7. ELPLAT [Suspect]
     Indication: RECTAL CANCER
     Dosage: 90 MG/BODY=57.7 MG/M2
     Route: 041
     Dates: start: 20071023, end: 20071023

REACTIONS (1)
  - ANAPHYLACTOID REACTION [None]
